FAERS Safety Report 8817324 (Version 1)
Quarter: 2012Q4

REPORT INFORMATION
  Report Type: 
  Country: FR (occurrence: FR)
  Receive Date: 20121004
  Receipt Date: 20121004
  Transmission Date: 20130627
  Serious: Yes (Hospitalization, Other)
  Sender: FDA-Public Use
  Company Number: FR-ASTRAZENECA-2012SE74215

PATIENT
  Age: 8242 Day
  Sex: Female

DRUGS (13)
  1. MERONEM [Suspect]
     Route: 042
     Dates: start: 20120812, end: 20120813
  2. MERONEM [Suspect]
     Route: 042
     Dates: start: 20120814, end: 20120814
  3. NEBCINE [Concomitant]
     Route: 042
     Dates: start: 20120812, end: 20120813
  4. NEBCINE [Concomitant]
     Route: 042
     Dates: start: 20120815
  5. TARGOCID [Concomitant]
     Route: 042
     Dates: start: 20120812, end: 20120812
  6. TARGOCID [Concomitant]
     Route: 042
     Dates: start: 20120813, end: 20120814
  7. TARGOCID [Concomitant]
     Route: 042
     Dates: start: 20120815
  8. TOCO [Concomitant]
  9. EUROBIOL [Concomitant]
  10. ZITHROMAX [Concomitant]
  11. TOBI [Concomitant]
  12. PULMOZYME [Concomitant]
  13. SERETIDE [Concomitant]

REACTIONS (6)
  - Oedema peripheral [Recovered/Resolved]
  - Arthralgia [Recovered/Resolved]
  - Respiratory distress [Unknown]
  - Hypoaesthesia [Unknown]
  - Pharyngeal oedema [Unknown]
  - Oropharyngeal pain [Unknown]
